FAERS Safety Report 7736447-5 (Version None)
Quarter: 2011Q3

REPORT INFORMATION
  Report Type: 
  Country: None (occurrence: None)
  Receive Date: 20110908
  Receipt Date: 20110831
  Transmission Date: 20111222
  Serious: Yes (Other)
  Sender: FDA-Public Use
  Company Number: DE-BRISTOL-MYERS SQUIBB COMPANY-16022527

PATIENT
  Sex: Male

DRUGS (1)
  1. HYDROXYUREA [Suspect]
     Indication: POLYCYTHAEMIA VERA

REACTIONS (5)
  - LUNG DISORDER [None]
  - PYREXIA [None]
  - LIVER FUNCTION TEST ABNORMAL [None]
  - ALVEOLITIS [None]
  - ASTHENIA [None]
